FAERS Safety Report 4716959-9 (Version None)
Quarter: 2005Q3

REPORT INFORMATION
  Report Type: 
  Country: None (occurrence: None)
  Receive Date: 20050719
  Receipt Date: 20050523
  Transmission Date: 20060218
  Serious: Yes (Other)
  Sender: FDA-Public Use
  Company Number: PHBS2005BE07516

PATIENT
  Age: 56 Year
  Sex: Male

DRUGS (2)
  1. VELCADE [Concomitant]
     Dates: start: 20041004
  2. ZOMETA [Suspect]
     Indication: MULTIPLE MYELOMA
     Dosage: 4 MG, QMO
     Route: 065
     Dates: start: 20021101, end: 20050201

REACTIONS (2)
  - ASEPTIC NECROSIS BONE [None]
  - ORAL MUCOSAL DISORDER [None]
